FAERS Safety Report 17435634 (Version 1)
Quarter: 2020Q1

REPORT INFORMATION
  Report Type: Spontaneous
  Country: AT (occurrence: AT)
  Receive Date: 20200219
  Receipt Date: 20200219
  Transmission Date: 20200409
  Serious: Yes (Hospitalization, Disabling)
  Sender: FDA-Public Use
  Company Number: AT-MYLANLABS-2020M1017884

PATIENT
  Age: 51 Year
  Sex: Male
  Weight: 90 kg

DRUGS (3)
  1. CIPROFLOXACIN. [Suspect]
     Active Substance: CIPROFLOXACIN
     Indication: RENAL COLIC
     Dosage: UNK(2XTGL 500MG F 5 TAGE)
     Route: 048
     Dates: start: 20180424, end: 20180429
  2. CIPROFLOXACIN. [Suspect]
     Active Substance: CIPROFLOXACIN
     Indication: PYREXIA
     Dosage: UNK(2XTGL 500MG F 5 TAGE)
     Route: 048
     Dates: start: 20180424, end: 20180429
  3. CIPROFLOXACIN. [Suspect]
     Active Substance: CIPROFLOXACIN
     Indication: NEPHROLITHIASIS
     Dosage: UNK(2XTGL 500MG F 5 TAGE)
     Route: 048
     Dates: start: 20180424, end: 20180429

REACTIONS (1)
  - Cerebral infarction [Recovered/Resolved with Sequelae]

NARRATIVE: CASE EVENT DATE: 20181027
